FAERS Safety Report 9629199 (Version 1)
Quarter: 2013Q4

REPORT INFORMATION
  Report Type: Spontaneous
  Country: JP (occurrence: JP)
  Receive Date: 20131017
  Receipt Date: 20131017
  Transmission Date: 20140711
  Serious: No
  Sender: FDA-Public Use
  Company Number: JP-ELI_LILLY_AND_COMPANY-JP201310004605

PATIENT
  Sex: Female

DRUGS (4)
  1. ADCIRCA [Suspect]
     Indication: SCLERODERMA
     Dosage: 20 MG, QD
     Route: 048
     Dates: start: 20131007
  2. TRACLEER [Concomitant]
  3. ANPLAG [Concomitant]
  4. URSO                               /00465701/ [Concomitant]
     Indication: LIVER DISORDER
     Route: 048

REACTIONS (2)
  - Vision blurred [Unknown]
  - Off label use [Unknown]
